FAERS Safety Report 16739018 (Version 1)
Quarter: 2019Q3

REPORT INFORMATION
  Report Type: Spontaneous
  Country: US (occurrence: US)
  Receive Date: 20190826
  Receipt Date: 20190826
  Transmission Date: 20191005
  Serious: No
  Sender: FDA-Public Use
  Company Number: US-AMGEN-USASP2019134163

PATIENT
  Age: 80 Year
  Sex: Female
  Weight: 56 kg

DRUGS (15)
  1. JAKAFI [Concomitant]
     Active Substance: RUXOLITINIB
     Dosage: 15 MILLIGRAM, BID
     Dates: start: 20180829
  2. ONDANSETRON [Concomitant]
     Active Substance: ONDANSETRON
     Dosage: UNK
  3. JAKAFI [Concomitant]
     Active Substance: RUXOLITINIB
     Dosage: 10 MILLIGRAM, BID
     Dates: start: 20181018
  4. JAKAFI [Concomitant]
     Active Substance: RUXOLITINIB
     Indication: MYELOFIBROSIS
     Dosage: 20 MILLIGRAM, BID
     Dates: start: 20180802, end: 20180823
  5. JAKAFI [Concomitant]
     Active Substance: RUXOLITINIB
     Dosage: 15 MILLIGRAM, BID
  6. NITROFURANTOIN MONOHYDRATE [Concomitant]
     Active Substance: NITROFURANTOIN MONOHYDRATE
     Dosage: UNK
  7. JAKAFI [Concomitant]
     Active Substance: RUXOLITINIB
     Dosage: 10 MILLIGRAM, BID
     Dates: start: 20181018
  8. CALTRATE PLUS [CALCIUM;COLECALCIFEROL;COPPER;MAGNESIUM;MANGANESE;ZINC] [Concomitant]
     Dosage: UNK
  9. HYDROCHLOROTHIAZIDE. [Concomitant]
     Active Substance: HYDROCHLOROTHIAZIDE
     Dosage: UNK
  10. LEVAQUIN [Concomitant]
     Active Substance: LEVOFLOXACIN
     Indication: URINARY TRACT INFECTION
     Dosage: UNK
  11. PROCRIT [Suspect]
     Active Substance: ERYTHROPOIETIN
     Indication: PRODUCT USED FOR UNKNOWN INDICATION
     Dosage: UNK
     Route: 065
  12. JAKAFI [Concomitant]
     Active Substance: RUXOLITINIB
     Dosage: 10 MILLIGRAM, BID
     Dates: start: 20180813
  13. JAKAFI [Concomitant]
     Active Substance: RUXOLITINIB
     Dosage: UNK
     Dates: start: 20181018
  14. ASPIRIN. [Concomitant]
     Active Substance: ASPIRIN
     Dosage: UNK
  15. MIRALAX [Concomitant]
     Active Substance: POLYETHYLENE GLYCOL 3350
     Dosage: UNK

REACTIONS (1)
  - Influenza like illness [Unknown]
